FAERS Safety Report 23028835 (Version 1)
Quarter: 2023Q4

REPORT INFORMATION
  Report Type: Spontaneous
  Country: PL (occurrence: PL)
  Receive Date: 20231004
  Receipt Date: 20231004
  Transmission Date: 20240110
  Serious: Yes (Death, Hospitalization, Other)
  Sender: FDA-Public Use
  Company Number: PL-PFM-2023-05439

PATIENT

DRUGS (2)
  1. BUSULFAN [Suspect]
     Active Substance: BUSULFAN
     Indication: Bone marrow conditioning regimen
     Dosage: UNK
     Route: 065
  2. CYCLOPHOSPHAMIDE [Concomitant]
     Active Substance: CYCLOPHOSPHAMIDE
     Indication: Bone marrow conditioning regimen
     Dosage: UNK
     Route: 065

REACTIONS (23)
  - Sudden cardiac death [Fatal]
  - Cytomegalovirus infection reactivation [Unknown]
  - Multiple organ dysfunction syndrome [Fatal]
  - Venoocclusive liver disease [Fatal]
  - Klebsiella infection [Unknown]
  - Catheter site infection [Unknown]
  - Klebsiella infection [Unknown]
  - Clostridium difficile infection [Fatal]
  - Meningitis [Unknown]
  - Enteritis [Fatal]
  - Enterobacter infection [Unknown]
  - Sinusitis fungal [Unknown]
  - Candida infection [Unknown]
  - Enterococcal infection [Unknown]
  - Aspergillus infection [Unknown]
  - Pseudomonas infection [Unknown]
  - Pneumocystis jirovecii infection [Unknown]
  - Staphylococcal infection [Unknown]
  - Staphylococcal infection [Unknown]
  - Escherichia infection [Unknown]
  - BK virus infection [Unknown]
  - Cystitis haemorrhagic [Unknown]
  - Pneumonia [Unknown]
